FAERS Safety Report 18436786 (Version 3)
Quarter: 2021Q1

REPORT INFORMATION
  Report Type: Report from Study
  Country: US (occurrence: US)
  Receive Date: 20201028
  Receipt Date: 20210228
  Transmission Date: 20210419
  Serious: Yes (Hospitalization)
  Sender: FDA-Public Use
  Company Number: US-JNJFOC-20190428673

PATIENT
  Age: 72 Year
  Sex: Male
  Weight: 98 kg

DRUGS (40)
  1. AMLODIPINE [Concomitant]
     Active Substance: AMLODIPINE BESYLATE
     Indication: HYPERTENSION
     Route: 048
  2. GUAIFENESIN. [Concomitant]
     Active Substance: GUAIFENESIN
     Indication: COUGH
  3. BACITRACIN. [Concomitant]
     Active Substance: BACITRACIN
  4. FUROSEMIDE. [Concomitant]
     Active Substance: FUROSEMIDE
     Indication: CHRONIC KIDNEY DISEASE
     Route: 048
  5. ASPIRIN. [Concomitant]
     Active Substance: ASPIRIN
     Indication: THROMBOSIS PROPHYLAXIS
     Route: 048
  6. LEVOFLOXACIN. [Concomitant]
     Active Substance: LEVOFLOXACIN
  7. MENTHOL. [Concomitant]
     Active Substance: MENTHOL
     Indication: DRY SKIN
  8. LOPERAMIDE [Concomitant]
     Active Substance: LOPERAMIDE
     Route: 048
  9. CEFEPIME [Concomitant]
     Active Substance: CEFEPIME HYDROCHLORIDE
     Indication: ANTIVIRAL PROPHYLAXIS
  10. BENZOCAINE. [Concomitant]
     Active Substance: BENZOCAINE
     Indication: OROPHARYNGEAL PAIN
  11. DARATUMUMAB [Suspect]
     Active Substance: DARATUMUMAB
     Indication: PLASMA CELL MYELOMA
     Dosage: DAYS 1, 8, 15, 22 FOR CYCLE 1?2; DAY 1 AND 15 CYCLES 3?6; AND DAY 1 OF 28 DAY CYCLE AFTER
     Route: 042
     Dates: start: 20180828
  12. ATENOLOL. [Concomitant]
     Active Substance: ATENOLOL
     Indication: HYPERTENSION
     Route: 048
  13. DIPHENHYDRAMINE W/IBUPROFEN [Concomitant]
     Active Substance: DIPHENHYDRAMINE HYDROCHLORIDE\IBUPROFEN
     Indication: PAIN
     Route: 048
  14. ACETAMINOPHEN. [Concomitant]
     Active Substance: ACETAMINOPHEN
     Indication: PREMEDICATION
     Route: 048
     Dates: start: 20180828
  15. ZINC OXIDE. [Concomitant]
     Active Substance: ZINC OXIDE
     Indication: HAEMORRHOIDS
  16. PANTOP [Concomitant]
     Active Substance: PANTOPRAZOLE SODIUM
     Indication: GASTROOESOPHAGEAL REFLUX DISEASE
  17. VITAMIN D3 [Concomitant]
     Active Substance: CHOLECALCIFEROL
     Route: 048
  18. LORAZEPAM. [Concomitant]
     Active Substance: LORAZEPAM
     Indication: ANXIETY
     Route: 048
  19. PRAMOCAINE [Concomitant]
     Active Substance: PRAMOXINE
  20. DARATUMUMAB [Suspect]
     Active Substance: DARATUMUMAB
     Dosage: 1616 MG?MOST RECENT DOSE (1536 MG) ON 03?DEC?2019
     Route: 042
     Dates: start: 20190319
  21. CETIRIZINE HYDROCHLORIDE. [Concomitant]
     Active Substance: CETIRIZINE HYDROCHLORIDE
     Indication: SEASONAL ALLERGY
     Route: 048
  22. OMEPRAZOLE. [Concomitant]
     Active Substance: OMEPRAZOLE
     Indication: GASTROOESOPHAGEAL REFLUX DISEASE
     Route: 048
  23. OXYCODONE [Concomitant]
     Active Substance: OXYCODONE
     Indication: PAIN
  24. VANCO [Concomitant]
     Active Substance: VANCOMYCIN
     Indication: HAEMORRHOIDS
  25. OSELTAMIVIR [Concomitant]
     Active Substance: OSELTAMIVIR
     Indication: ANTIVIRAL PROPHYLAXIS
  26. MOCOUGH [Concomitant]
     Indication: COUGH
  27. POMALIDOMIDE [Suspect]
     Active Substance: POMALIDOMIDE
     Indication: PLASMA CELL MYELOMA
     Dosage: FREQUENCY: ON DAYS 1?21 OF EACH 28?DAY CYCLE?MOST RECENT DOSE 2 MG ON 10?JUN?2019
     Route: 048
     Dates: start: 20180828
  28. FLUTICASONE. [Concomitant]
     Active Substance: FLUTICASONE
     Indication: SEASONAL ALLERGY
  29. DIPHENHYDRAMINE. [Concomitant]
     Active Substance: DIPHENHYDRAMINE
     Indication: PREMEDICATION
     Route: 048
     Dates: start: 20180828
  30. MONTELUKAST [Concomitant]
     Active Substance: MONTELUKAST SODIUM
  31. WHITE PETROLATUM MINERAL OIL [Concomitant]
     Indication: DRY SKIN
  32. POLYMYXIN B. [Concomitant]
     Active Substance: POLYMYXIN B
  33. ATEZOLIZUMAB. [Suspect]
     Active Substance: ATEZOLIZUMAB
     Indication: PLASMA CELL MYELOMA
     Dosage: ON DAYS 2 AND 16 OF CYCLE 1 AND ON DAYS 1 AND 15 OF EACH SUBSEQUENT CYCLES
     Route: 042
     Dates: start: 20180829
  34. ATEZOLIZUMAB. [Suspect]
     Active Substance: ATEZOLIZUMAB
     Dosage: MOST RECENT DOSE ON 17?DEC?2019
     Route: 042
     Dates: start: 20190402
  35. TRAZODONE [Concomitant]
     Active Substance: TRAZODONE HYDROCHLORIDE
     Indication: DEPRESSION
     Route: 048
  36. ACYCLOVIR. [Concomitant]
     Active Substance: ACYCLOVIR
     Route: 048
     Dates: start: 20180925
  37. HYDRALAZINE [Concomitant]
     Active Substance: HYDRALAZINE HYDROCHLORIDE
     Indication: HYPERTENSION
     Route: 048
     Dates: start: 20180925
  38. AMOXICILLIN CLAVULANATE [Concomitant]
     Active Substance: AMOXICILLIN\CLAVULANIC ACID
  39. CAMPHOR [Concomitant]
     Active Substance: CAMPHOR
  40. MENTHA X PIPERITA OIL [Concomitant]

REACTIONS (2)
  - Influenza [Recovered/Resolved]
  - Febrile neutropenia [Recovered/Resolved]

NARRATIVE: CASE EVENT DATE: 20190410
